FAERS Safety Report 5978098-9 (Version None)
Quarter: 2008Q4

REPORT INFORMATION
  Report Type: 
  Country: None (occurrence: None)
  Receive Date: 20081203
  Receipt Date: 20081121
  Transmission Date: 20090506
  Serious: Yes (Death, Hospitalization, Other)
  Sender: FDA-Public Use
  Company Number: JP-WYE-H03779608

PATIENT
  Sex: Female
  Weight: 49 kg

DRUGS (13)
  1. RHEUMATREX [Suspect]
     Indication: RHEUMATOID ARTHRITIS
     Route: 048
     Dates: start: 20061229, end: 20070304
  2. RHEUMATREX [Suspect]
     Route: 048
     Dates: start: 20070309, end: 20080413
  3. AMLODIPINE [Concomitant]
     Indication: HYPERTENSION
     Route: 048
     Dates: start: 20070323, end: 20080416
  4. CRESTOR [Concomitant]
     Dosage: UNKNOWN
     Route: 048
  5. ACECOL [Concomitant]
     Indication: HYPERTENSION
     Route: 048
     Dates: start: 20070416, end: 20080416
  6. ASPIRIN [Concomitant]
     Indication: CAROTID ARTERY STENOSIS
     Route: 048
     Dates: start: 20080401, end: 20080416
  7. DIOVAN [Concomitant]
     Indication: HYPERTENSION
     Route: 048
     Dates: start: 20070323, end: 20080416
  8. RIMATIL [Suspect]
     Indication: RHEUMATOID ARTHRITIS
     Route: 048
     Dates: start: 20060408, end: 20070406
  9. RIMATIL [Suspect]
     Route: 048
     Dates: start: 20080208, end: 20080416
  10. PREDNISOLONE [Concomitant]
     Indication: RHEUMATOID ARTHRITIS
     Route: 048
     Dates: start: 20060901, end: 20070201
  11. PEON [Suspect]
     Indication: PAIN
     Route: 048
     Dates: start: 20080403, end: 20080406
  12. OSTELUC [Suspect]
     Indication: PAIN
     Route: 048
     Dates: start: 20080407, end: 20080416
  13. ACINON [Concomitant]
     Dosage: UNKNOWN
     Route: 048

REACTIONS (6)
  - CONDITION AGGRAVATED [None]
  - GASTROINTESTINAL EROSION [None]
  - HUMERUS FRACTURE [None]
  - INCORRECT DOSE ADMINISTERED [None]
  - PANCYTOPENIA [None]
  - RENAL IMPAIRMENT [None]
